FAERS Safety Report 8344245-7 (Version None)
Quarter: 2012Q2

REPORT INFORMATION
  Report Type: 
  Country: None (occurrence: None)
  Receive Date: 20120508
  Receipt Date: 20120423
  Transmission Date: 20120825
  Serious: Yes (Other)
  Sender: FDA-Public Use
  Company Number: US-JNJFOC-20120402713

PATIENT

DRUGS (3)
  1. RISPERIDONE [Suspect]
     Indication: SCHIZOPHRENIA
     Dosage: ON DAY 3
     Route: 065
  2. RISPERIDONE [Suspect]
     Dosage: ON DAYS 1 AND 2
     Route: 065
  3. RISPERIDONE [Suspect]
     Dosage: BEGINNING WITH DAY 8 DOSING COULD BE ADJUSTED TO BETWEEN 2 AND 6 MG/DAY.
     Route: 065

REACTIONS (21)
  - AKATHISIA [None]
  - CONDITION AGGRAVATED [None]
  - NASOPHARYNGITIS [None]
  - PARKINSONISM [None]
  - VOMITING [None]
  - SOMNOLENCE [None]
  - DIZZINESS [None]
  - ELECTROCARDIOGRAM QT PROLONGED [None]
  - PSYCHOTIC DISORDER [None]
  - INSOMNIA [None]
  - BLOOD PROLACTIN ABNORMAL [None]
  - HEADACHE [None]
  - SCHIZOPHRENIA [None]
  - NAUSEA [None]
  - SEDATION [None]
  - ANXIETY [None]
  - SUICIDAL IDEATION [None]
  - WEIGHT INCREASED [None]
  - DYSTONIA [None]
  - WEIGHT DECREASED [None]
  - CONSTIPATION [None]
